FAERS Safety Report 4799965-8 (Version None)
Quarter: 2005Q4

REPORT INFORMATION
  Report Type: 
  Country: None (occurrence: None)
  Receive Date: 20051013
  Receipt Date: 20051005
  Transmission Date: 20060501
  Serious: Yes (Life-Threatening, Hospitalization)
  Sender: FDA-Public Use
  Company Number: 200510097BSV

PATIENT
  Age: 68 Year
  Sex: Female

DRUGS (13)
  1. MOXIFLOXACIN HCL [Suspect]
     Indication: PNEUMONIA
     Dosage: 400 MG, TOTAL DAILY, ORAL
     Route: 048
     Dates: start: 20050823, end: 20050831
  2. MAGNYL   SAD [Concomitant]
  3. PLAVIX [Concomitant]
  4. IMDUR [Concomitant]
  5. CENTYL MED KALIUMKLORD [Concomitant]
  6. ZOCOR [Concomitant]
  7. SELEZOK [Concomitant]
  8. SPIRON [Concomitant]
  9. ODRIK [Concomitant]
  10. CIPRAMIL [Concomitant]
  11. SERETIDE [Concomitant]
  12. SPIRIVA   BOEHRINGER INGELHEIM [Concomitant]
  13. KETOGAN [Concomitant]

REACTIONS (1)
  - HYPOGLYCAEMIA [None]
